FAERS Safety Report 10456377 (Version 2)
Quarter: 2024Q4

REPORT INFORMATION
  Report Type: Spontaneous
  Country: AU (occurrence: AU)
  Receive Date: 20140916
  Receipt Date: 20241022
  Transmission Date: 20250115
  Serious: Yes (Hospitalization, Other)
  Sender: SANOFI AVENTIS
  Company Number: AU-SA-2014SA122416

PATIENT
  Age: 35 Year
  Sex: Male

DRUGS (8)
  1. SPIRONOLACTONE [Suspect]
     Active Substance: SPIRONOLACTONE
     Indication: Weight control
     Dosage: 50 MG,QD
  2. FUROSEMIDE [Suspect]
     Active Substance: FUROSEMIDE
     Indication: Weight control
     Dosage: 80 MG,QD
  3. LETROZOLE [Suspect]
     Active Substance: LETROZOLE
     Indication: Prophylaxis
     Dosage: 2.5 MG,QD
  4. TAMOXIFEN [Concomitant]
     Active Substance: TAMOXIFEN
     Indication: Prophylaxis
     Dosage: 20 MG,QD
  5. METHANDROSTENOLONE [Concomitant]
     Active Substance: METHANDROSTENOLONE
     Dosage: 100 MG, QD
  6. METHANDROSTENOLONE [Concomitant]
     Active Substance: METHANDROSTENOLONE
     Dosage: SELF-ADMINISTERED IN CYCLES OF 6 TO 10 WEEKS, WITH A 2- TO 3-WEEK SUSPENSION PERIOD BETWEEN CYCLES
  7. TESTOSTERONE [Concomitant]
     Active Substance: TESTOSTERONE
     Dosage: 2 IM INJECTIONS
     Route: 030
  8. TESTOSTERONE PROPIONATE [Concomitant]
     Active Substance: TESTOSTERONE PROPIONATE
     Dosage: 2 IM INJECTIONS
     Route: 030

REACTIONS (6)
  - Acute kidney injury [Recovering/Resolving]
  - Drug abuse [Recovering/Resolving]
  - Myalgia [Recovering/Resolving]
  - Renal impairment [Recovering/Resolving]
  - Dehydration [Recovered/Resolved]
  - Product use in unapproved indication [Unknown]
